FAERS Safety Report 21528958 (Version 1)
Quarter: 2022Q4

REPORT INFORMATION
  Report Type: Spontaneous
  Country: US (occurrence: US)
  Receive Date: 20221031
  Receipt Date: 20221031
  Transmission Date: 20230112
  Serious: Yes (Life-Threatening, Hospitalization, Other)
  Sender: FDA-Public Use
  Company Number: US-MLMSERVICE-20221018-3866284-1

PATIENT
  Age: 37 Year
  Sex: Male

DRUGS (5)
  1. DIAZEPAM [Suspect]
     Active Substance: DIAZEPAM
     Indication: Product used for unknown indication
     Dosage: ONE SIP OF HIS FRIEND^S MAID REGIMEN CONSISTING OF MICRONIZED DIGOXIN 100MG, DIAZEPAM 1 G, MORPHI...
  2. DIGOXIN [Suspect]
     Active Substance: DIGOXIN
     Indication: Product used for unknown indication
     Dosage: ONE SIP OF HIS FRIEND^S MAID REGIMEN CONSISTING OF MICRONIZED DIGOXIN 100MG, DIAZEPAM 1 G, MORPHI...
  3. AMITRIPTYLINE [Suspect]
     Active Substance: AMITRIPTYLINE
     Indication: Product used for unknown indication
     Dosage: ONE SIP OF HIS FRIEND^S MAID REGIMEN CONSISTING OF MICRONIZED DIGOXIN 100MG, DIAZEPAM 1 G, MORPHI...
  4. MORPHINE [Suspect]
     Active Substance: MORPHINE
     Indication: Product used for unknown indication
     Dosage: ONE SIP OF HIS FRIEND^S MAID REGIMEN CONSISTING OF MICRONIZED DIGOXIN 100MG, DIAZEPAM 1 G, MORPHI...
  5. PHENOBARBITAL [Suspect]
     Active Substance: PHENOBARBITAL
     Indication: Product used for unknown indication
     Dosage: ONE SIP OF HIS FRIEND^S MAID REGIMEN CONSISTING OF MICRONIZED DIGOXIN 100MG, DIAZEPAM 1 G, MORPHI...

REACTIONS (7)
  - Pneumonia aspiration [Recovered/Resolved]
  - Accidental exposure to product [Recovered/Resolved]
  - Coma [Recovered/Resolved]
  - Blood potassium increased [Recovered/Resolved]
  - Electrocardiogram PR prolongation [Recovered/Resolved]
  - Electrocardiogram QRS complex prolonged [Recovered/Resolved]
  - Acute kidney injury [Unknown]
